FAERS Safety Report 6785510-4 (Version None)
Quarter: 2010Q2

REPORT INFORMATION
  Report Type: 
  Country: None (occurrence: None)
  Receive Date: 20100623
  Receipt Date: 20100617
  Transmission Date: 20101027
  Serious: Yes (Death)
  Sender: FDA-Public Use
  Company Number: US-CELGENEUS-163-21880-10061894

PATIENT
  Sex: Female

DRUGS (2)
  1. REVLIMID [Suspect]
     Indication: MULTIPLE MYELOMA
     Route: 048
     Dates: start: 20100301, end: 20100601
  2. REVLIMID [Suspect]
     Route: 048
     Dates: start: 20091029, end: 20100101

REACTIONS (2)
  - CARDIAC DISORDER [None]
  - RENAL DISORDER [None]
